FAERS Safety Report 10494572 (Version 1)
Quarter: 2014Q4

REPORT INFORMATION
  Report Type: Spontaneous
  Country: IT (occurrence: None)
  Receive Date: 20141001
  Receipt Date: 20141001
  Transmission Date: 20150528
  Serious: Yes (Other)
  Sender: FDA-Public Use
  Company Number: 20141967-000

PATIENT
  Age: 50 Year
  Sex: Female

DRUGS (2)
  1. INFLIXIMAB [Suspect]
     Active Substance: INFLIXIMAB
     Indication: RHEUMATOID ARTHRITIS
     Dosage: 3 MG/KG IN 8 WEEKS
     Dates: start: 2001
  2. METHOTREXATE [Suspect]
     Active Substance: METHOTREXATE
     Indication: RHEUMATOID ARTHRITIS
     Dates: start: 2001

REACTIONS (5)
  - Sensorimotor disorder [None]
  - Dysarthria [None]
  - Bone erosion [None]
  - Nuclear magnetic resonance imaging brain abnormal [None]
  - Partial seizures [None]

NARRATIVE: CASE EVENT DATE: 20101201
